FAERS Safety Report 4500393-0 (Version None)
Quarter: 2004Q4

REPORT INFORMATION
  Report Type: 
  Country: None (occurrence: None)
  Receive Date: 20041112
  Receipt Date: 20041103
  Transmission Date: 20050328
  Serious: Yes (Hospitalization)
  Sender: FDA-Public Use
  Company Number: FR-MERCK-0411FRA00021

PATIENT
  Age: 54 Year
  Sex: Female
  Weight: 70 kg

DRUGS (6)
  1. FOSAMAX [Suspect]
     Indication: OSTEOPOROSIS
     Route: 048
     Dates: start: 20030301, end: 20040130
  2. ATENOLOL [Concomitant]
     Indication: HYPERTENSION
     Route: 048
  3. FENOFIBRATE [Concomitant]
     Indication: HYPERCHOLESTEROLAEMIA
     Route: 048
  4. LEVOCETIRIZINE HYDROCHLORIDE [Concomitant]
     Route: 048
     Dates: start: 20031201, end: 20040101
  5. CALCIUM CARBONATE AND CHOLECALCIFEROL [Concomitant]
     Indication: OSTEOPOROSIS
     Route: 048
     Dates: start: 20030401, end: 20040130
  6. ALTHIAZIDE AND SPIRONOLACTONE [Concomitant]
     Indication: HYPERTENSION
     Route: 048

REACTIONS (1)
  - DUODENAL PERFORATION [None]
